FAERS Safety Report 6783242-X (Version None)
Quarter: 2010Q2

REPORT INFORMATION
  Report Type: 
  Country: None (occurrence: None)
  Receive Date: 20100622
  Receipt Date: 20100608
  Transmission Date: 20101027
  Serious: Yes (Hospitalization)
  Sender: FDA-Public Use
  Company Number: DE-RANBAXY-2009RR-24659

PATIENT
  Age: 70 Year
  Sex: Female
  Weight: 62 kg

DRUGS (8)
  1. RAMIPRIL [Suspect]
     Indication: HYPERTENSION
     Dosage: 10 MG, BID
     Route: 048
     Dates: start: 20090415
  2. TELMISARTAN AND HYDROCHLOROTHIAZIDE [Suspect]
     Indication: HYPERTENSION
     Dosage: 1 DF, QD
     Route: 048
  3. TRAMAL/GRUENENTHAL [Concomitant]
     Indication: PAIN
     Dosage: 100 MG, TID
     Route: 048
     Dates: start: 19990101
  4. TRIMIPRAMINE [Concomitant]
     Indication: DEPRESSION
     Dosage: 25 MG, QD
     Route: 048
  5. METOPROLOL TARTRATE [Concomitant]
     Indication: HYPERTENSION
     Dosage: 50 MG, QD
     Route: 048
  6. PANTOZOL [Concomitant]
     Indication: REFLUX OESOPHAGITIS
     Dosage: 20 MG, QD
     Route: 048
  7. SIMVASTATIN [Concomitant]
     Indication: HYPERCHOLESTEROLAEMIA
     Dosage: 20 MG, QD
     Route: 048
  8. ZOLPIDEM [Concomitant]
     Indication: SLEEP DISORDER
     Dosage: 10 MG, QD
     Route: 048

REACTIONS (2)
  - HYPERTENSIVE CRISIS [None]
  - HYPONATRAEMIA [None]
